FAERS Safety Report 10174218 (Version 1)
Quarter: 2014Q2

REPORT INFORMATION
  Report Type: Spontaneous
  Country: US (occurrence: None)
  Receive Date: 20140416
  Receipt Date: 20140416
  Transmission Date: 20141212
  Serious: Yes (Other)
  Sender: FDA-Public Use
  Company Number: 163-POMAL-14013132

PATIENT
  Age: 76 Year
  Sex: Male
  Weight: 76.7 kg

DRUGS (1)
  1. POMALYST [Suspect]
     Indication: PLASMA CELL MYELOMA
     Route: 048
     Dates: start: 201311

REACTIONS (4)
  - Hypotension [None]
  - Full blood count decreased [None]
  - Orchitis [None]
  - Pyrexia [None]
